FAERS Safety Report 12127849 (Version 1)
Quarter: 2016Q1

REPORT INFORMATION
  Report Type: Spontaneous
  Country: GB (occurrence: GB)
  Receive Date: 20160229
  Receipt Date: 20160229
  Transmission Date: 20160526
  Serious: Yes (Death)
  Sender: FDA-Public Use
  Company Number: GB-EGALET US INC-GB-2016EGA000118

PATIENT

DRUGS (1)
  1. OXYCODONE HYDROCHLORIDE. [Suspect]
     Active Substance: OXYCODONE HYDROCHLORIDE
     Indication: BACK PAIN
     Dosage: UNK

REACTIONS (6)
  - Abdominal pain [Fatal]
  - Pneumoperitoneum [Fatal]
  - Large intestine perforation [Fatal]
  - Sepsis [Fatal]
  - Septic shock [Fatal]
  - Peritonitis [Fatal]
